FAERS Safety Report 24733764 (Version 8)
Quarter: 2025Q4

REPORT INFORMATION
  Report Type: Report from Study
  Country: CA (occurrence: CA)
  Receive Date: 20241213
  Receipt Date: 20251006
  Transmission Date: 20260117
  Serious: Yes (Other)
  Sender: JOHNSON AND JOHNSON
  Company Number: CA-JNJFOC-20220424265

PATIENT
  Age: 48 Year
  Sex: Female
  Weight: 74.5 kg

DRUGS (19)
  1. REMICADE [Suspect]
     Active Substance: INFLIXIMAB
     Indication: Colitis ulcerative
     Route: 041
     Dates: start: 20101014
  2. REMICADE [Suspect]
     Active Substance: INFLIXIMAB
     Indication: Crohn^s disease
     Route: 041
     Dates: start: 20220607
  3. REMICADE [Suspect]
     Active Substance: INFLIXIMAB
     Route: 041
     Dates: start: 20100825
  4. REMICADE [Suspect]
     Active Substance: INFLIXIMAB
     Route: 041
     Dates: start: 20101001
  5. REMICADE [Suspect]
     Active Substance: INFLIXIMAB
     Route: 041
     Dates: start: 20240704
  6. REMICADE [Suspect]
     Active Substance: INFLIXIMAB
     Route: 041
     Dates: start: 20101014
  7. REMICADE [Suspect]
     Active Substance: INFLIXIMAB
     Route: 041
     Dates: start: 20101014
  8. REMICADE [Suspect]
     Active Substance: INFLIXIMAB
     Route: 041
     Dates: start: 20101014
  9. REMICADE [Suspect]
     Active Substance: INFLIXIMAB
     Route: 041
     Dates: start: 20101014
  10. REMICADE [Suspect]
     Active Substance: INFLIXIMAB
     Route: 041
     Dates: start: 20101014
  11. REMICADE [Suspect]
     Active Substance: INFLIXIMAB
     Route: 041
     Dates: start: 20250228
  12. REMICADE [Suspect]
     Active Substance: INFLIXIMAB
     Route: 041
     Dates: start: 20250629
  13. REMICADE [Suspect]
     Active Substance: INFLIXIMAB
     Route: 041
  14. REMICADE [Suspect]
     Active Substance: INFLIXIMAB
     Route: 041
  15. REMICADE [Suspect]
     Active Substance: INFLIXIMAB
     Route: 041
  16. REMICADE [Suspect]
     Active Substance: INFLIXIMAB
     Dosage: 100MG/1 ML
     Route: 041
  17. REMICADE [Suspect]
     Active Substance: INFLIXIMAB
     Route: 041
     Dates: start: 20250815
  18. COVID-19 VACCINE NOS [Suspect]
     Active Substance: COVID-19 VACCINE
     Indication: COVID-19
     Route: 065
     Dates: start: 20241114
  19. OZEMPIC [Concomitant]
     Active Substance: SEMAGLUTIDE
     Indication: Weight decreased

REACTIONS (19)
  - Crohn^s disease [Not Recovered/Not Resolved]
  - Chronic sinusitis [Recovered/Resolved]
  - Fatigue [Recovered/Resolved]
  - Aphonia [Recovered/Resolved]
  - Nasopharyngitis [Unknown]
  - Influenza [Recovered/Resolved]
  - Rash [Recovered/Resolved]
  - Influenza like illness [Recovered/Resolved]
  - Throat irritation [Recovered/Resolved]
  - Malaise [Unknown]
  - Laryngitis [Recovered/Resolved]
  - Off label use [Unknown]
  - Respiratory disorder [Unknown]
  - Abdominal pain [Not Recovered/Not Resolved]
  - Therapeutic product effect decreased [Unknown]
  - Mucous stools [Recovered/Resolved]
  - Tracheitis [Unknown]
  - Fungal infection [Unknown]
  - Rhinorrhoea [Unknown]

NARRATIVE: CASE EVENT DATE: 20230315
